FAERS Safety Report 20501665 (Version 5)
Quarter: 2022Q1

REPORT INFORMATION
  Report Type: Report from Study
  Country: KR (occurrence: None)
  Receive Date: 20220222
  Receipt Date: 20220329
  Transmission Date: 20220423
  Serious: Yes (Hospitalization)
  Sender: FDA-Public Use
  Company Number: KR-Eisai Medical Research-EC-2022-109105

PATIENT
  Age: 51 Year
  Sex: Male
  Weight: 56 kg

DRUGS (14)
  1. LENVATINIB [Suspect]
     Active Substance: LENVATINIB
     Indication: Hepatocellular carcinoma
     Route: 048
     Dates: start: 20210910, end: 20220112
  2. PEMBROLIZUMAB [Suspect]
     Active Substance: PEMBROLIZUMAB
     Indication: Hepatocellular carcinoma
     Dosage: ON DAY 1
     Route: 041
     Dates: start: 20210910, end: 20211203
  3. PEMBROLIZUMAB [Suspect]
     Active Substance: PEMBROLIZUMAB
     Dosage: ON DAY 1
     Route: 041
     Dates: start: 20220114, end: 20220114
  4. VIREAD [Concomitant]
     Active Substance: TENOFOVIR DISOPROXIL FUMARATE
     Dates: start: 20210707
  5. GASMOTIN [MOSAPRIDE CITRATE] [Concomitant]
     Dates: start: 20211203, end: 20220204
  6. ESPERSON [Concomitant]
     Route: 061
     Dates: start: 20211203, end: 20220204
  7. XYZAL [Concomitant]
     Active Substance: LEVOCETIRIZINE DIHYDROCHLORIDE
     Dates: start: 20220114, end: 20220204
  8. TWYNSTA [Concomitant]
     Active Substance: AMLODIPINE BESYLATE\TELMISARTAN
     Dates: start: 20220114, end: 20220126
  9. ATROPINE SULFATE [Concomitant]
     Active Substance: ATROPINE SULFATE
     Route: 030
     Dates: start: 20220127, end: 20220127
  10. VITAMINS [Concomitant]
     Active Substance: VITAMINS
     Route: 030
     Dates: start: 20220127, end: 20220127
  11. MEPERIDINE HYDROCHLORIDE [Concomitant]
     Active Substance: MEPERIDINE HYDROCHLORIDE
     Route: 030
     Dates: start: 20220127, end: 20220127
  12. TRIAXONE [Concomitant]
     Dates: start: 20220127, end: 20220127
  13. TYLENOL 8HR [Concomitant]
     Active Substance: ACETAMINOPHEN
     Dates: start: 20220128, end: 20220203
  14. ULTRACET [Concomitant]
     Active Substance: ACETAMINOPHEN\TRAMADOL HYDROCHLORIDE
     Dates: start: 20220128, end: 20220203

REACTIONS (1)
  - Adrenal insufficiency [Recovering/Resolving]

NARRATIVE: CASE EVENT DATE: 20220204
